FAERS Safety Report 6644532-4 (Version None)
Quarter: 2010Q1

REPORT INFORMATION
  Report Type: 
  Country: None (occurrence: None)
  Receive Date: 20100319
  Receipt Date: 20100319
  Transmission Date: 20100710
  Serious: No
  Sender: FDA-Public Use
  Company Number: None

PATIENT
  Age: 23 Year
  Sex: Male
  Weight: 99.7913 kg

DRUGS (1)
  1. INVEGA [Suspect]
     Indication: PARANOIA
     Dosage: 3MG BEFORE BED
     Dates: start: 20100301

REACTIONS (2)
  - EMOTIONAL DISORDER [None]
  - PSYCHOTIC DISORDER [None]
